FAERS Safety Report 7817048-7 (Version None)
Quarter: 2011Q4

REPORT INFORMATION
  Report Type: 
  Country: None (occurrence: None)
  Receive Date: 20111014
  Receipt Date: 20111014
  Transmission Date: 20120403
  Serious: Yes (Hospitalization)
  Sender: FDA-Public Use
  Company Number: None

PATIENT
  Age: 71 Year
  Sex: Male
  Weight: 79.3795 kg

DRUGS (1)
  1. CHLOROQUINE DIPHOSPHATE [Suspect]
     Indication: MALARIA PROPHYLAXIS
     Dosage: 500 MG 1 PER WEEK ORAL
     Route: 048
     Dates: start: 20110124, end: 20110304

REACTIONS (4)
  - PYREXIA [None]
  - MALAISE [None]
  - WEIGHT DECREASED [None]
  - HEPATIC ENZYME INCREASED [None]
